FAERS Safety Report 13741586 (Version 1)
Quarter: 2017Q3

REPORT INFORMATION
  Report Type: Spontaneous
  Country: US (occurrence: US)
  Receive Date: 20170711
  Receipt Date: 20170711
  Transmission Date: 20171127
  Serious: Yes (Hospitalization)
  Sender: FDA-Public Use
  Company Number: None

PATIENT
  Age: 65 Year
  Sex: Female
  Weight: 63.5 kg

DRUGS (2)
  1. CAPECITABINE. [Concomitant]
     Active Substance: CAPECITABINE
  2. MEMANTINE HYDROCHLORIDE. [Suspect]
     Active Substance: MEMANTINE HYDROCHLORIDE
     Dates: end: 20170611

REACTIONS (13)
  - Gait inability [None]
  - Back pain [None]
  - Fall [None]
  - Feeding disorder [None]
  - Flatulence [None]
  - Hydrocephalus [None]
  - Neck pain [None]
  - Asthenia [None]
  - Pain [None]
  - Nausea [None]
  - Headache [None]
  - Metastases to meninges [None]
  - Vomiting [None]

NARRATIVE: CASE EVENT DATE: 20170622
